FAERS Safety Report 5728667-6 (Version None)
Quarter: 2008Q2

REPORT INFORMATION
  Report Type: 
  Country: None (occurrence: None)
  Receive Date: 20080506
  Receipt Date: 20080425
  Transmission Date: 20081010
  Serious: Yes (Hospitalization, Other)
  Sender: FDA-Public Use
  Company Number: SE-JNJFOC-20080405547

PATIENT
  Age: 60 Year
  Sex: Male
  Weight: 72.6 kg

DRUGS (10)
  1. REMICADE [Suspect]
     Dosage: TOTAL # INFUSIONS: 2
     Route: 042
  2. REMICADE [Suspect]
     Indication: COLITIS ULCERATIVE
     Route: 042
  3. AZATHIOPRINE [Concomitant]
  4. ASACOL [Concomitant]
  5. PREDNISOLON [Concomitant]
  6. BETAPROD [Concomitant]
  7. PRODCLYSMA [Concomitant]
  8. PENTASA [Concomitant]
  9. OMEPRAZOLE [Concomitant]
  10. BACTRIM [Concomitant]

REACTIONS (3)
  - COLITIS ULCERATIVE [None]
  - MIGRAINE [None]
  - TUBERCULOSIS [None]
